FAERS Safety Report 5018488-4 (Version None)
Quarter: 2006Q2

REPORT INFORMATION
  Report Type: 
  Country: None (occurrence: None)
  Receive Date: 20060530
  Receipt Date: 20050427
  Transmission Date: 20061013
  Serious: Yes (Other)
  Sender: FDA-Public Use
  Company Number: 2005066734

PATIENT
  Sex: Male

DRUGS (1)
  1. PREGABALIN          (PREGABALIN) [Suspect]
     Indication: CONVULSION
     Dosage: 150 MG (75 MG, 2 IN 1 D), ORAL
     Route: 048

REACTIONS (4)
  - ASTHENIA [None]
  - HYPOCALCAEMIA [None]
  - NAUSEA [None]
  - VOMITING [None]
